FAERS Safety Report 7376812-1 (Version None)
Quarter: 2011Q1

REPORT INFORMATION
  Report Type: 
  Country: None (occurrence: None)
  Receive Date: 20110325
  Receipt Date: 20110322
  Transmission Date: 20110831
  Serious: Yes (Hospitalization, Other)
  Sender: FDA-Public Use
  Company Number: US-ABBOTT-11P-163-0713846-00

PATIENT
  Sex: Female
  Weight: 63.56 kg

DRUGS (6)
  1. PREDNISONE [Concomitant]
     Indication: RHEUMATOID ARTHRITIS
  2. HUMIRA [Suspect]
     Indication: RHEUMATOID ARTHRITIS
     Dates: start: 20070101, end: 20101001
  3. HUMIRA [Suspect]
     Dates: start: 20110321
  4. ATENOLOL [Concomitant]
     Indication: HYPERTENSION
     Dates: end: 20110101
  5. HYDROCODONE BITARTRATE [Concomitant]
     Indication: PAIN
  6. CICLOPIROX [Concomitant]
     Indication: NAIL DISORDER

REACTIONS (10)
  - NEPHROLITHIASIS [None]
  - VOMITING [None]
  - SEPSIS [None]
  - PYREXIA [None]
  - ABDOMINAL PAIN [None]
  - HYPOPHAGIA [None]
  - PAIN [None]
  - CHILLS [None]
  - NAUSEA [None]
  - HEADACHE [None]
